FAERS Safety Report 11836884 (Version 2)
Quarter: 2016Q1

REPORT INFORMATION
  Report Type: Spontaneous
  Country: US (occurrence: US)
  Receive Date: 20151215
  Receipt Date: 20160223
  Transmission Date: 20160525
  Serious: Yes (Hospitalization, Other)
  Sender: FDA-Public Use
  Company Number: US-ELI_LILLY_AND_COMPANY-US201512001086

PATIENT
  Age: 48 Year
  Sex: Male
  Weight: 122.45 kg

DRUGS (1)
  1. AXIRON [Suspect]
     Active Substance: TESTOSTERONE
     Indication: ANDROGEN REPLACEMENT THERAPY
     Dosage: UNK, UNKNOWN
     Route: 065
     Dates: start: 20121003, end: 20140112

REACTIONS (7)
  - Chronic kidney disease [Unknown]
  - Hypoaesthesia [Unknown]
  - Cardiac failure congestive [Unknown]
  - Hypertension [Unknown]
  - Cough [Unknown]
  - Deep vein thrombosis [Unknown]
  - Oedema peripheral [Unknown]

NARRATIVE: CASE EVENT DATE: 20130516
